FAERS Safety Report 5095907-9 (Version None)
Quarter: 2006Q3

REPORT INFORMATION
  Report Type: 
  Country: None (occurrence: None)
  Receive Date: 20060905
  Receipt Date: 20060823
  Transmission Date: 20061208
  Serious: Yes (Other)
  Sender: FDA-Public Use
  Company Number: PHFR2006GB02659

PATIENT

DRUGS (3)
  1. IMPLANON [Suspect]
     Indication: CONTRACEPTION
  2. RAPAMUNE [Concomitant]
     Route: 065
  3. MYFORTIC [Suspect]
     Indication: RENAL TRANSPLANT
     Route: 065

REACTIONS (2)
  - BLOOD CREATININE INCREASED [None]
  - DRUG INTERACTION [None]
